FAERS Safety Report 6606784-6 (Version None)
Quarter: 2010Q1

REPORT INFORMATION
  Report Type: 
  Country: None (occurrence: None)
  Receive Date: 20100226
  Receipt Date: 20090206
  Transmission Date: 20100710
  Serious: No
  Sender: FDA-Public Use
  Company Number: US-ALLERGAN-0901477US

PATIENT
  Age: 62 Year
  Sex: Female

DRUGS (5)
  1. BOTOX [Suspect]
     Indication: MIGRAINE
     Dosage: UNK, SINGLE
     Route: 030
     Dates: start: 20081101, end: 20081101
  2. BOTOX [Suspect]
     Indication: TORTICOLLIS
  3. NEURONTIN [Concomitant]
     Indication: TORTICOLLIS
     Dosage: 900 MG, QD
     Route: 048
  4. AXERT [Concomitant]
     Indication: TORTICOLLIS
  5. FIORICET [Concomitant]
     Indication: MIGRAINE
     Dosage: UNK, PRN
     Route: 048

REACTIONS (5)
  - CONTUSION [None]
  - INJECTION SITE PAIN [None]
  - INJECTION SITE SWELLING [None]
  - MUSCLE SPASMS [None]
  - MUSCULAR WEAKNESS [None]
